FAERS Safety Report 13387163 (Version 1)
Quarter: 2017Q1

REPORT INFORMATION
  Report Type: Report from Study
  Country: US (occurrence: US)
  Receive Date: 20170330
  Receipt Date: 20170330
  Transmission Date: 20170429
  Serious: Yes (Other)
  Sender: FDA-Public Use
  Company Number: US-AMGEN-USASP2017046573

PATIENT
  Age: 53 Year
  Sex: Female

DRUGS (2)
  1. ENBREL [Suspect]
     Active Substance: ETANERCEPT
     Indication: RHEUMATOID ARTHRITIS
     Dosage: 50 MG, ONCE A WEEK
     Route: 065
  2. FOLIC ACID. [Concomitant]
     Active Substance: FOLIC ACID
     Dosage: UNK

REACTIONS (15)
  - Stomatitis [Unknown]
  - Lower respiratory tract infection [Unknown]
  - Wrong technique in product usage process [Unknown]
  - Mobility decreased [Unknown]
  - Nasopharyngitis [Unknown]
  - Tooth fracture [Unknown]
  - Oral herpes [Unknown]
  - Drug dose omission [Unknown]
  - Injection site reaction [Unknown]
  - Vertigo [Recovering/Resolving]
  - Arthralgia [Unknown]
  - Malaise [Unknown]
  - Cough [Unknown]
  - Lower limb fracture [Unknown]
  - Accidental exposure to product [Unknown]

NARRATIVE: CASE EVENT DATE: 2016
